FAERS Safety Report 16794607 (Version 1)
Quarter: 2019Q3

REPORT INFORMATION
  Report Type: Spontaneous
  Country: US (occurrence: US)
  Receive Date: 20190911
  Receipt Date: 20190911
  Transmission Date: 20191005
  Serious: Yes (Death, Hospitalization)
  Sender: FDA-Public Use
  Company Number: US-MYLANLABS-2019M1084934

PATIENT
  Age: 27 Year
  Sex: Male

DRUGS (6)
  1. MILTEFOSINE [Suspect]
     Active Substance: MILTEFOSINE
     Indication: EVIDENCE BASED TREATMENT
     Route: 065
  2. AZITHROMYCIN ANHYDROUS. [Suspect]
     Active Substance: AZITHROMYCIN ANHYDROUS
     Indication: EVIDENCE BASED TREATMENT
     Route: 065
  3. SULFADIAZINE. [Suspect]
     Active Substance: SULFADIAZINE
     Indication: EVIDENCE BASED TREATMENT
     Route: 065
  4. FLUCYTOSINE. [Suspect]
     Active Substance: FLUCYTOSINE
     Indication: EVIDENCE BASED TREATMENT
     Route: 065
  5. FLUCONAZOLE. [Suspect]
     Active Substance: FLUCONAZOLE
     Indication: EVIDENCE BASED TREATMENT
     Route: 065
  6. PENTAMIDINE [Suspect]
     Active Substance: PENTAMIDINE
     Indication: EVIDENCE BASED TREATMENT
     Route: 065

REACTIONS (1)
  - Drug ineffective [Fatal]
